FAERS Safety Report 8523277-X (Version None)
Quarter: 2012Q3

REPORT INFORMATION
  Report Type: 
  Country: None (occurrence: None)
  Receive Date: 20120713
  Receipt Date: 20120713
  Transmission Date: 20120928
  Serious: Yes (Life-Threatening)
  Sender: FDA-Public Use
  Company Number: None

PATIENT
  Age: 62 Year
  Sex: Female
  Weight: 95.2554 kg

DRUGS (1)
  1. INDAPAMIDE [Suspect]
     Indication: HYPERTENSION
     Dosage: 1 PILL EACH DAY PO
     Route: 048
     Dates: start: 20120215, end: 20120225

REACTIONS (3)
  - GAIT DISTURBANCE [None]
  - DIZZINESS [None]
  - BLOOD GLUCOSE INCREASED [None]
